FAERS Safety Report 23469917 (Version 2)
Quarter: 2024Q1

REPORT INFORMATION
  Report Type: Report from Study
  Country: NL (occurrence: NL)
  Receive Date: 20240202
  Receipt Date: 20240207
  Transmission Date: 20240410
  Serious: Yes (Hospitalization)
  Sender: FDA-Public Use
  Company Number: NL-ABBVIE-5616212

PATIENT
  Sex: Female

DRUGS (8)
  1. CARBIDOPA\LEVODOPA [Suspect]
     Active Substance: CARBIDOPA\LEVODOPA
     Indication: Parkinson^s disease
     Dosage: MD 5.0, CD 3.0, ED 2.00, END 2.00, CND 1.2?REMAINS AT 24 HOURS
     Route: 050
     Dates: start: 20230517, end: 20231017
  2. CARBIDOPA\LEVODOPA [Suspect]
     Active Substance: CARBIDOPA\LEVODOPA
     Dosage: MD 5.0, CD 3.0, ED 2.00, END 2.00, CND 1.2 REMAINS AT 24 HOURS
     Route: 050
     Dates: start: 20231017, end: 20240130
  3. CARBIDOPA\LEVODOPA [Suspect]
     Active Substance: CARBIDOPA\LEVODOPA
     Route: 050
     Dates: start: 20170302
  4. CARBIDOPA\LEVODOPA [Suspect]
     Active Substance: CARBIDOPA\LEVODOPA
     Route: 050
     Dates: start: 20240130
  5. RIVASTIGMINE [Concomitant]
     Active Substance: RIVASTIGMINE
     Indication: Hallucination
  6. CARBIDOPA\LEVODOPA [Concomitant]
     Active Substance: CARBIDOPA\LEVODOPA
     Indication: Parkinson^s disease
  7. MOVICOLON [Concomitant]
     Active Substance: POLYETHYLENE GLYCOL 3350\POTASSIUM CHLORIDE\SODIUM BICARBONATE\SODIUM CHLORIDE
     Indication: Abnormal faeces
  8. Microlax [Concomitant]
     Indication: Abnormal faeces

REACTIONS (23)
  - Rehabilitation therapy [Not Recovered/Not Resolved]
  - Device use error [Recovered/Resolved]
  - Product contamination [Recovered/Resolved]
  - Tremor [Not Recovered/Not Resolved]
  - Loss of personal independence in daily activities [Not Recovered/Not Resolved]
  - Device connection issue [Unknown]
  - Hallucination [Not Recovered/Not Resolved]
  - Device issue [Recovering/Resolving]
  - Product dose omission in error [Not Recovered/Not Resolved]
  - Fall [Not Recovered/Not Resolved]
  - Immobile [Not Recovered/Not Resolved]
  - Device connection issue [Recovered/Resolved]
  - Unevaluable event [Recovering/Resolving]
  - Complication associated with device [Not Recovered/Not Resolved]
  - On and off phenomenon [Not Recovered/Not Resolved]
  - Muscle rigidity [Not Recovered/Not Resolved]
  - Freezing phenomenon [Not Recovered/Not Resolved]
  - Appetite disorder [Not Recovered/Not Resolved]
  - Cognitive disorder [Not Recovered/Not Resolved]
  - Asthenia [Not Recovered/Not Resolved]
  - Stress [Not Recovered/Not Resolved]
  - Dyskinesia [Not Recovered/Not Resolved]
  - Terminal state [Unknown]
